FAERS Safety Report 4759256-8 (Version None)
Quarter: 2005Q3

REPORT INFORMATION
  Report Type: 
  Country: None (occurrence: None)
  Receive Date: 20050831
  Receipt Date: 20050823
  Transmission Date: 20060218
  Serious: Yes (Hospitalization)
  Sender: FDA-Public Use
  Company Number: EM2005-0407

PATIENT
  Age: 52 Year
  Sex: Female

DRUGS (13)
  1. PROLEUKIN [Suspect]
     Indication: MALIGNANT MELANOMA
     Dosage: 2 MIU, QD, SUBCUTAN.
     Route: 058
     Dates: start: 20050525, end: 20050612
  2. DENTRITIC CELL VACCINATION [Concomitant]
  3. SIMVASTATIN [Concomitant]
  4. IMOVANE (ZOPICLONE)TABLET [Concomitant]
  5. GABAPENTIN [Concomitant]
  6. KYTRIL (GRANISETRON ( TABELT [Concomitant]
  7. PANODIL (PARACETAMOL) TABLET [Concomitant]
  8. OXYCONTIN (OXYCODONE HYDROCHLORIDE) TABLET [Concomitant]
  9. NEXIUM [Concomitant]
  10. LAXOBERAL ^THOMAE KARL^ (SODIUM PICOSULFATE) DROPS [Concomitant]
  11. LORAZEPAM [Concomitant]
  12. ALOPAM (OXAZEPAM) TABLET [Concomitant]
  13. OXINORM (ORGOTEIN) TABLET [Concomitant]

REACTIONS (3)
  - CEREBRAL HAEMORRHAGE [None]
  - HEMIPLEGIA [None]
  - METASTASES TO CENTRAL NERVOUS SYSTEM [None]
